FAERS Safety Report 8246515-X (Version None)
Quarter: 2012Q1

REPORT INFORMATION
  Report Type: 
  Country: None (occurrence: None)
  Receive Date: 20120330
  Receipt Date: 20120321
  Transmission Date: 20120608
  Serious: Yes (Other)
  Sender: FDA-Public Use
  Company Number: US-JNJFOC-20110807766

PATIENT
  Sex: Male

DRUGS (34)
  1. ASPIRIN [Concomitant]
     Indication: CARDIOVASCULAR EVENT PROPHYLAXIS
     Route: 048
     Dates: start: 20000101
  2. AVAPRO [Concomitant]
     Indication: HYPERTENSION
     Dosage: EVERY MORNING
     Route: 048
     Dates: start: 20020101
  3. VANTAS [Concomitant]
     Route: 065
     Dates: start: 20090716
  4. VANTAS [Concomitant]
     Indication: HORMONE THERAPY
     Route: 065
     Dates: start: 20061001
  5. ABIRATERONE ACETATE [Suspect]
     Route: 048
     Dates: start: 20110823
  6. NOVOLOG [Concomitant]
     Dosage: EVERY MORNING
     Route: 058
     Dates: start: 20070801
  7. TORSEMIDE [Concomitant]
     Route: 048
     Dates: start: 20100128, end: 20100305
  8. TORSEMIDE [Concomitant]
     Route: 048
     Dates: start: 20100305, end: 20101230
  9. TORSEMIDE [Concomitant]
     Route: 048
     Dates: start: 20101230, end: 20110811
  10. VANTAS [Concomitant]
     Route: 065
     Dates: start: 20090716
  11. COREG [Concomitant]
     Indication: CORONARY ARTERY DISEASE
     Route: 048
     Dates: start: 20050901
  12. COREG [Concomitant]
     Route: 048
     Dates: start: 20050901
  13. TORSEMIDE [Concomitant]
     Indication: HYPERTENSION
     Route: 048
     Dates: start: 20110811
  14. TORSEMIDE [Concomitant]
     Route: 048
     Dates: start: 20101230, end: 20110811
  15. ABIRATERONE ACETATE [Suspect]
     Indication: PROSTATE CANCER METASTATIC
     Route: 048
     Dates: start: 20090716, end: 20110815
  16. CARTIA XT [Concomitant]
     Indication: HYPERTENSION
     Route: 048
     Dates: start: 20010701
  17. CLARINEX [Concomitant]
     Indication: MULTIPLE ALLERGIES
     Route: 048
     Dates: start: 20060401
  18. PLAVIX [Concomitant]
     Indication: ARTERIOSCLEROSIS
     Route: 048
     Dates: start: 20000901
  19. SIMCOR [Concomitant]
     Indication: HYPERLIPIDAEMIA
     Route: 048
     Dates: start: 20080801
  20. AVAPRO [Concomitant]
     Dosage: EVERY MORNING
     Route: 048
     Dates: start: 20020101
  21. TETRACYCLINE [Concomitant]
     Indication: ROSACEA
     Route: 048
     Dates: start: 19970131
  22. TORSEMIDE [Concomitant]
     Route: 048
     Dates: start: 20000901, end: 20100128
  23. TORSEMIDE [Concomitant]
     Route: 048
     Dates: start: 20000901, end: 20100128
  24. VANTAS [Concomitant]
     Indication: CANCER HORMONAL THERAPY
     Route: 065
     Dates: start: 20061001
  25. TORSEMIDE [Concomitant]
     Route: 048
     Dates: start: 20100305, end: 20101230
  26. CALTRATE + D [Concomitant]
     Indication: PROPHYLAXIS
     Route: 048
     Dates: start: 20100128
  27. LANTUS [Concomitant]
     Indication: DIABETES MELLITUS
     Route: 058
     Dates: start: 20070801
  28. TORSEMIDE [Concomitant]
     Route: 048
     Dates: start: 20100128, end: 20100305
  29. FLOMAX [Concomitant]
     Indication: URINARY TRACT DISORDER
     Route: 048
     Dates: start: 20091130
  30. PREDNISONE TAB [Suspect]
     Indication: PROSTATE CANCER METASTATIC
     Route: 048
     Dates: start: 20090716
  31. NOVOLOG [Concomitant]
     Indication: DIABETES MELLITUS
     Dosage: EVERY MORNING
     Route: 058
     Dates: start: 20070801
  32. SINGULAIR [Concomitant]
     Indication: MULTIPLE ALLERGIES
     Route: 048
     Dates: start: 20060401
  33. TORSEMIDE [Concomitant]
     Indication: DIURETIC THERAPY
     Route: 048
     Dates: start: 20110811
  34. LASIX [Concomitant]
     Indication: OEDEMA PERIPHERAL
     Route: 048
     Dates: start: 20110501

REACTIONS (1)
  - HYPERURICAEMIA [None]
